FAERS Safety Report 8125587-7 (Version None)
Quarter: 2012Q1

REPORT INFORMATION
  Report Type: 
  Country: None (occurrence: None)
  Receive Date: 20120209
  Receipt Date: 20120201
  Transmission Date: 20120608
  Serious: Yes (Other)
  Sender: FDA-Public Use
  Company Number: JP-PFIZER INC-2011300157

PATIENT
  Age: 40 Year
  Sex: Male

DRUGS (16)
  1. RABEPRAZOLE SODIUM [Concomitant]
     Dosage: 10 MG, 1X/DAY
     Route: 048
  2. MARZULENE S [Concomitant]
     Dosage: 0.67G, 3X/DAY
     Route: 048
  3. LYRICA [Concomitant]
     Dosage: 75 MG, 1X/DAY
     Route: 048
  4. PRAVASTATIN SODIUM [Concomitant]
     Dosage: 10 MG, 1X/DAY
     Route: 048
  5. PURSENNID [Concomitant]
     Dosage: 36 MG, 1X/DAY
     Route: 048
  6. ACTONEL [Concomitant]
     Dosage: 1 DF, WEEKLY
     Route: 048
  7. PREDNISOLONE [Concomitant]
     Dosage: 5 MG, 1X/DAY
     Route: 048
  8. ZYVOX [Suspect]
     Dosage: 600 MG, 2X/DAY
     Route: 041
     Dates: end: 20111225
  9. DEPAS [Concomitant]
     Dosage: 0.5 MG, 1X/DAY
     Route: 048
  10. LYRICA [Concomitant]
     Dosage: 25 MG, 3X/DAY
     Route: 048
  11. CYANOCOBALAMIN [Concomitant]
     Dosage: 1 DF, 3X/DAY
     Route: 048
  12. STREPTOCOCCUS FAECALIS [Concomitant]
     Dosage: 1 G, 3X/DAY
     Route: 048
  13. URSO 250 [Concomitant]
     Dosage: 100 MG, 3X/DAY
     Route: 048
  14. ALLOPURINOL [Concomitant]
     Dosage: 150 MG, 1X/DAY
     Route: 048
  15. METHYCOBAL [Concomitant]
     Dosage: 500 UG, 3X/DAY
     Route: 048
  16. PREDNISOLONE [Concomitant]
     Dosage: 1 MG, 2X/DAY
     Route: 048

REACTIONS (2)
  - ANGIOPATHY [None]
  - ANAEMIA [None]
